FAERS Safety Report 16745540 (Version 1)
Quarter: 2019Q3

REPORT INFORMATION
  Report Type: Other
  Country: CA (occurrence: CA)
  Receive Date: 20190827
  Receipt Date: 20190827
  Transmission Date: 20191005
  Serious: Yes (Other)
  Sender: FDA-Public Use
  Company Number: CA-PFIZER INC-2019360794

PATIENT
  Age: 42 Year
  Sex: Male

DRUGS (2)
  1. CALCIUM CHLORIDE. [Suspect]
     Active Substance: CALCIUM CHLORIDE
     Indication: PSEUDOHYPOPARATHYROIDISM
     Dosage: UNK
     Route: 065
  2. CALCITRIOL. [Suspect]
     Active Substance: CALCITRIOL
     Indication: PSEUDOHYPOPARATHYROIDISM
     Dosage: UNK
     Route: 065

REACTIONS (2)
  - Chronic kidney disease [Recovered/Resolved]
  - Calcinosis [Recovered/Resolved]
